FAERS Safety Report 20542071 (Version 1)
Quarter: 2022Q1

REPORT INFORMATION
  Report Type: Report from Study
  Country: DE (occurrence: DE)
  Receive Date: 20220302
  Receipt Date: 20220302
  Transmission Date: 20220423
  Serious: Yes (Hospitalization)
  Sender: FDA-Public Use
  Company Number: DE-JNJFOC-20211204619

PATIENT
  Age: 74 Year
  Sex: Male
  Weight: 81.4 kg

DRUGS (27)
  1. DARATUMUMAB [Suspect]
     Active Substance: DARATUMUMAB
     Indication: Plasma cell myeloma
     Dosage: MOST RECENT DOSE 16-NOV-2021 MED KIT 104606
     Route: 058
     Dates: start: 20210906
  2. ELIQUIS [Concomitant]
     Active Substance: APIXABAN
     Indication: Atrial fibrillation
     Route: 048
     Dates: start: 201708
  3. TAMSULOSIN [Concomitant]
     Active Substance: TAMSULOSIN
     Indication: Benign prostatic hyperplasia
     Route: 048
     Dates: start: 20210813, end: 20211116
  4. COTRIMOXAZOLE [Concomitant]
     Active Substance: SULFAMETHOXAZOLE\TRIMETHOPRIM
     Indication: Prophylaxis
     Route: 048
     Dates: start: 20210813
  5. AMLODIPINE [Concomitant]
     Active Substance: AMLODIPINE BESYLATE
     Indication: Hypertension
     Route: 048
     Dates: start: 20210908
  6. BARACLUDE [Concomitant]
     Active Substance: ENTECAVIR
     Indication: Prophylaxis
     Route: 048
     Dates: start: 20210909
  7. RAMIPRIL [Concomitant]
     Active Substance: RAMIPRIL
     Indication: Prophylaxis
     Route: 048
     Dates: start: 20210910
  8. ACYCLOVIR [Concomitant]
     Active Substance: ACYCLOVIR
     Indication: Prophylaxis
     Route: 048
     Dates: start: 20210913
  9. POTASSIUM CHLORIDE [Concomitant]
     Active Substance: POTASSIUM CHLORIDE
     Indication: Prophylaxis
     Route: 048
     Dates: start: 20210911
  10. METAMIZOLE [Concomitant]
     Active Substance: METAMIZOLE
     Indication: Cytokine release syndrome
     Route: 048
     Dates: start: 20210910
  11. MEROPENEM [Concomitant]
     Active Substance: MEROPENEM
     Indication: Cytokine release syndrome
     Route: 048
     Dates: start: 20210919
  12. MAGNESIUM OXIDE [Concomitant]
     Active Substance: MAGNESIUM OXIDE
     Indication: Anaemia
     Route: 048
     Dates: start: 20210916
  13. MAGNESIUM OXIDE [Concomitant]
     Active Substance: MAGNESIUM OXIDE
     Indication: Prophylaxis
     Route: 048
     Dates: start: 20211105
  14. ACETAMINOPHEN [Concomitant]
     Active Substance: ACETAMINOPHEN
     Indication: Pyrexia
     Route: 048
     Dates: start: 20210915
  15. PANTOPRAZOLE [Concomitant]
     Active Substance: PANTOPRAZOLE
     Indication: Prophylaxis
     Route: 048
     Dates: start: 20210919
  16. PREDNISOLONE ACETATE [Concomitant]
     Active Substance: PREDNISOLONE ACETATE
     Indication: Inflammation
     Route: 047
     Dates: start: 20210917
  17. ZYKLOLAT [Concomitant]
     Indication: Eye inflammation
     Route: 047
     Dates: start: 20210917
  18. SILOMAT [PENTOXYVERINE CITRATE] [Concomitant]
     Indication: Parainfluenzae virus infection
     Route: 054
     Dates: start: 20210927
  19. MUCOANGIN [Concomitant]
     Indication: Parainfluenzae virus infection
     Route: 048
     Dates: start: 20210924
  20. XYLOMETAZOLINE HYDROCHLORIDE [Concomitant]
     Active Substance: XYLOMETAZOLINE HYDROCHLORIDE
     Indication: Parainfluenzae virus infection
     Route: 065
     Dates: start: 20210927
  21. PARACODIN [DIHYDROCODEINE] [Concomitant]
     Indication: Parainfluenzae virus infection
     Route: 048
     Dates: start: 20210927
  22. COLDASTOP [Concomitant]
     Indication: Parainfluenzae virus infection
     Route: 048
     Dates: start: 20210926
  23. CARBOHYDRATES\FATTY ACIDS\MINERALS\PROTEIN\VITAMINS [Concomitant]
     Active Substance: CARBOHYDRATES\FATTY ACIDS\MINERALS\PROTEIN\VITAMINS
     Indication: Prophylaxis
     Route: 048
     Dates: start: 20210926
  24. VORICONAZOLE [Concomitant]
     Active Substance: VORICONAZOLE
     Indication: Parainfluenzae virus infection
     Route: 048
     Dates: start: 20210930
  25. DICLOFENAC [Concomitant]
     Active Substance: DICLOFENAC
     Indication: Arthralgia
     Route: 065
     Dates: start: 202110
  26. COVID-19 VACCINE [Concomitant]
     Indication: Prophylaxis
     Route: 030
     Dates: start: 20211118
  27. CEFPODOXIME [Concomitant]
     Active Substance: CEFPODOXIME
     Indication: Febrile infection
     Route: 048
     Dates: start: 20211109, end: 20211113

REACTIONS (1)
  - Infection [Not Recovered/Not Resolved]

NARRATIVE: CASE EVENT DATE: 20211128
